FAERS Safety Report 9442643 (Version 1)
Quarter: 2013Q3

REPORT INFORMATION
  Report Type: Spontaneous
  Country: US (occurrence: None)
  Receive Date: 20130805
  Receipt Date: 20130805
  Transmission Date: 20140515
  Serious: No
  Sender: FDA-Public Use
  Company Number: None

PATIENT
  Age: 55 None
  Sex: Female

DRUGS (1)
  1. BOTOX [Suspect]
     Route: 030
     Dates: start: 20130221, end: 20130301

REACTIONS (5)
  - Palpitations [None]
  - Dizziness [None]
  - Malaise [None]
  - Diarrhoea [None]
  - Hot flush [None]
